FAERS Safety Report 9343349 (Version 3)
Quarter: 2013Q3

REPORT INFORMATION
  Report Type: Spontaneous
  Country: JP (occurrence: JP)
  Receive Date: 20130612
  Receipt Date: 20130808
  Transmission Date: 20140515
  Serious: No
  Sender: FDA-Public Use
  Company Number: JP-ROCHE-1232619

PATIENT
  Age: 67 Year
  Sex: Male

DRUGS (3)
  1. HERCEPTIN [Suspect]
     Indication: GASTRIC CANCER
     Dosage: DOSAGE IS UNCERTAIN.
     Route: 041
     Dates: start: 20130427
  2. XELODA [Suspect]
     Indication: GASTRIC CANCER
     Route: 048
     Dates: start: 20130427
  3. CISPLATIN [Concomitant]
     Indication: GASTRIC CANCER
     Dosage: DOSAGE IS UNCERTAIN.
     Route: 041
     Dates: start: 20130427

REACTIONS (2)
  - Neuropathy peripheral [Not Recovered/Not Resolved]
  - Hypoaesthesia [Unknown]
